FAERS Safety Report 5465068-2 (Version None)
Quarter: 2007Q3

REPORT INFORMATION
  Report Type: 
  Country: None (occurrence: None)
  Receive Date: 20070820
  Receipt Date: 20070605
  Transmission Date: 20080115
  Serious: No
  Sender: FDA-Public Use
  Company Number: TPA2007A01056

PATIENT
  Age: 60 Year
  Sex: Male
  Weight: 65.7716 kg

DRUGS (5)
  1. ROZEREM [Suspect]
     Indication: INSOMNIA
     Dosage: 8 MG, HS, PER ORAL
     Route: 048
     Dates: start: 20070510
  2. LIPITOR [Concomitant]
  3. SEROQUEL [Concomitant]
  4. AMBIEN CR [Concomitant]
  5. AMBIEN [Concomitant]

REACTIONS (1)
  - MIDDLE INSOMNIA [None]
